FAERS Safety Report 6553514-2 (Version None)
Quarter: 2010Q1

REPORT INFORMATION
  Report Type: 
  Country: None (occurrence: None)
  Receive Date: 20100127
  Receipt Date: 20100118
  Transmission Date: 20100710
  Serious: Yes (Other)
  Sender: FDA-Public Use
  Company Number: JP-ROCHE-621117

PATIENT
  Age: 42 Year
  Sex: Female

DRUGS (8)
  1. REBETOL [Suspect]
     Indication: PNEUMONIA PARAINFLUENZAE VIRAL
     Dosage: FOR A WEEK.
     Route: 048
     Dates: start: 20070731
  2. REBETOL [Suspect]
     Route: 048
     Dates: start: 20070811
  3. METHYLPREDNISOLONE [Suspect]
     Indication: PNEUMONIA PARAINFLUENZAE VIRAL
     Dosage: FOR 3 DAYS
     Route: 042
     Dates: start: 20070811, end: 20070813
  4. CYCLOPHOSPHAMIDE [Concomitant]
     Dosage: CONDITIONING REGIMEN
  5. TACROLIMUS [Concomitant]
     Indication: PROPHYLAXIS AGAINST GRAFT VERSUS HOST DISEASE
  6. TACROLIMUS [Concomitant]
     Dates: start: 20070701
  7. METHOTREXATE [Concomitant]
     Indication: PROPHYLAXIS AGAINST GRAFT VERSUS HOST DISEASE
     Dosage: SHORT TERM METHOTREXATE
  8. LEVOFLOXACIN [Concomitant]

REACTIONS (1)
  - BONE MARROW FAILURE [None]
